FAERS Safety Report 25972743 (Version 2)
Quarter: 2025Q4

REPORT INFORMATION
  Report Type: Report from Study
  Country: TR (occurrence: TR)
  Receive Date: 20251029
  Receipt Date: 20251113
  Transmission Date: 20260117
  Serious: Yes (Hospitalization)
  Sender: ABBVIE
  Company Number: TR-ABBVIE-6519602

PATIENT
  Sex: Female

DRUGS (4)
  1. CARBIDOPA\LEVODOPA [Suspect]
     Active Substance: CARBIDOPA\LEVODOPA
     Indication: Parkinson^s disease
     Dosage: MORNING DOSE (ML): 7.00 CONTINUOUS DOSE (ML): 2.00 EXTRA DOSE (ML): 1.00
     Route: 050
     Dates: start: 20220614, end: 20251023
  2. CARBIDOPA\LEVODOPA [Suspect]
     Active Substance: CARBIDOPA\LEVODOPA
     Dosage: MORNING DOSE (ML): 7.00 CONTINUOUS DOSE (ML): 2.00 EXTRA DOSE (ML): 1.00
     Route: 050
     Dates: start: 20251104
  3. Pexa [Concomitant]
     Indication: Parkinson^s disease
     Dosage: FORM STRENGTH: 1.5 MILLIGRAM
     Route: 048
     Dates: start: 20220614
  4. Dopadex sr [Concomitant]
     Indication: Parkinson^s disease
     Dosage: FORM STRENGTH: 200 MILLIGRAM
     Route: 048

REACTIONS (2)
  - Spinal fracture [Recovered/Resolved]
  - Device occlusion [Unknown]
